FAERS Safety Report 4365626-2 (Version None)
Quarter: 2004Q2

REPORT INFORMATION
  Report Type: 
  Country: None (occurrence: None)
  Receive Date: 20040527
  Receipt Date: 20031007
  Transmission Date: 20050107
  Serious: Yes (Hospitalization)
  Sender: FDA-Public Use
  Company Number: US-BRISTOL-MYERS SQUIBB COMPANY-12404125

PATIENT
  Age: 76 Year
  Sex: Male

DRUGS (3)
  1. DILTIAZEM HCL [Suspect]
     Route: 048
  2. PRINIVIL [Suspect]
     Route: 048
  3. NITROGLYCERIN [Suspect]
     Route: 061

REACTIONS (2)
  - DIZZINESS [None]
  - VISION BLURRED [None]
